FAERS Safety Report 24093860 (Version 1)
Quarter: 2024Q3

REPORT INFORMATION
  Report Type: Spontaneous
  Country: QA (occurrence: QA)
  Receive Date: 20240716
  Receipt Date: 20240716
  Transmission Date: 20241017
  Serious: Yes (Hospitalization)
  Sender: ELI LILLY AND CO
  Company Number: QA-ELI_LILLY_AND_COMPANY-QA202407004379

PATIENT
  Sex: Female

DRUGS (3)
  1. VERZENIO [Suspect]
     Active Substance: ABEMACICLIB
     Indication: Product used for unknown indication
     Dosage: 150 MG, UNKNOWN
     Route: 065
     Dates: start: 2023, end: 202406
  2. VERZENIO [Suspect]
     Active Substance: ABEMACICLIB
     Dosage: 100 MG, UNKNOWN
     Route: 065
     Dates: start: 20240703
  3. LETROZOLE [Concomitant]
     Active Substance: LETROZOLE
     Indication: Product used for unknown indication

REACTIONS (4)
  - Renal injury [Recovering/Resolving]
  - Hypotension [Recovering/Resolving]
  - Diarrhoea [Recovering/Resolving]
  - Hypertension [Recovering/Resolving]

NARRATIVE: CASE EVENT DATE: 20230101
